FAERS Safety Report 7167539-X (Version None)
Quarter: 2010Q4

REPORT INFORMATION
  Report Type: 
  Country: None (occurrence: None)
  Receive Date: 20101216
  Receipt Date: 20100315
  Transmission Date: 20110411
  Serious: No
  Sender: FDA-Public Use
  Company Number: A0850165A

PATIENT
  Age: 56 Year
  Sex: Female

DRUGS (2)
  1. COMMIT [Suspect]
     Dates: start: 20100309
  2. HYDROCHLOROTHIAZIDE [Concomitant]

REACTIONS (1)
  - OEDEMA PERIPHERAL [None]
